FAERS Safety Report 4352247-0 (Version None)
Quarter: 2004Q2

REPORT INFORMATION
  Report Type: 
  Country: None (occurrence: None)
  Receive Date: 20040421
  Receipt Date: 20040301
  Transmission Date: 20050107
  Serious: Yes (Hospitalization)
  Sender: FDA-Public Use
  Company Number: 30018758-NA01-1

PATIENT
  Sex: Female
  Weight: 80.2867 kg

DRUGS (23)
  1. EXTRANEAL [Suspect]
     Indication: PERITONEAL DIALYSIS
     Dosage: 7.5% ICODEXTRIN 2.5L, QD IP
     Dates: start: 20040123, end: 20040222
  2. EXTRANEAL [Suspect]
     Indication: PERITONEAL DIALYSIS
     Dosage: 7.5% ICODEXTRIN 2.5L, QD IP
     Dates: start: 20040224
  3. DIANEAL LOW CALCIM PERITONEAL DIALYSIS SOLUTION [Concomitant]
  4. ECOTRIN [Concomitant]
  5. PROVERA [Concomitant]
  6. SYNTHROID [Concomitant]
  7. LANOXIN [Concomitant]
  8. NORVASC [Concomitant]
  9. LIPITOR [Concomitant]
  10. MONOPRIL [Concomitant]
  11. QUININE SULFATE [Concomitant]
  12. FETINIC [Concomitant]
  13. RENEX [Concomitant]
  14. RESTORIL [Concomitant]
  15. EPOGEN [Concomitant]
  16. COLACE [Concomitant]
  17. PHOSIO [Concomitant]
  18. CHLOR-TRIMETON [Concomitant]
  19. PREVACID [Concomitant]
  20. EPOGEN [Concomitant]
  21. INSULIN PUMP [Concomitant]
  22. BASAL RATE [Concomitant]
  23. BOLUS [Concomitant]

REACTIONS (4)
  - ABDOMINAL PAIN [None]
  - DERMATITIS EXFOLIATIVE [None]
  - RASH ERYTHEMATOUS [None]
  - RASH MACULAR [None]
